FAERS Safety Report 11820027 (Version 2)
Quarter: 2017Q1

REPORT INFORMATION
  Report Type: Spontaneous
  Country: FR (occurrence: FR)
  Receive Date: 20151210
  Receipt Date: 20170310
  Transmission Date: 20170428
  Serious: Yes (Life-Threatening, Hospitalization)
  Sender: FDA-Public Use
  Company Number: FR-ACCORD-036126

PATIENT
  Age: 1 Hour
  Sex: Male
  Weight: 1.77 kg

DRUGS (5)
  1. METHYLPREDNISONE [Concomitant]
     Active Substance: METHYLPREDNISOLONE
  2. FOLINIC ACID [Suspect]
     Active Substance: LEUCOVORIN
     Indication: COLORECTAL CANCER
     Dosage: PT.TOOK FOLFOX ON 19-OCT AND 02-NOV-2015- 400 MG/M2
     Route: 064
     Dates: start: 20151019
  3. CELESTENE [Concomitant]
     Active Substance: BETAMETHASONE
     Dosage: ON 12-OCT-2015, 13- OCT-2015, 04-NOV-2015 AND 05-NOV-2015
     Route: 064
     Dates: start: 20151012
  4. FLUOROURACIL. [Suspect]
     Active Substance: FLUOROURACIL
     Indication: COLORECTAL CANCER
     Dosage: PT.TOOK FOLFOX ON 19-OCT-2015 ON 02-NOV-2015 (FLUOROURACIL AT DOSE OF 3 MG/M2).
     Route: 064
     Dates: start: 20151019
  5. OXALIPLATIN. [Suspect]
     Active Substance: OXALIPLATIN
     Indication: COLORECTAL CANCER
     Dosage: PT.TOOK FOLFOX ON 19-OCT AND 02-NOV-2015 (OXALIPLATIN AT 85 MG/M2)
     Route: 064
     Dates: start: 20151019

REACTIONS (2)
  - Premature delivery [Unknown]
  - Foetal exposure during pregnancy [Unknown]

NARRATIVE: CASE EVENT DATE: 20151115
